FAERS Safety Report 5914959-4 (Version None)
Quarter: 2008Q4

REPORT INFORMATION
  Report Type: 
  Country: None (occurrence: None)
  Receive Date: 20081010
  Receipt Date: 20081001
  Transmission Date: 20090506
  Serious: Yes (Other)
  Sender: FDA-Public Use
  Company Number: US-WATSON-2008-05883

PATIENT
  Sex: Male
  Weight: 68.934 kg

DRUGS (8)
  1. LISINOPRIL [Suspect]
     Indication: DRUG USE FOR UNKNOWN INDICATION
     Dosage: 10 MG, DAILY
     Route: 048
     Dates: start: 20070123, end: 20080815
  2. ASPIRIN [Suspect]
     Indication: DRUG USE FOR UNKNOWN INDICATION
     Dosage: 81 MG, DAILY
     Route: 048
     Dates: start: 20080726
  3. ASPIRIN [Suspect]
     Dosage: 325 MG, DAILY
     Route: 048
     Dates: start: 20080611, end: 20080725
  4. ASPIRIN [Suspect]
     Dosage: 81 MG, DAILY
     Route: 048
     Dates: start: 20060301, end: 20080610
  5. PLAVIX [Suspect]
     Indication: PROPHYLAXIS
     Dosage: 75 MG, DAILY
     Route: 048
     Dates: start: 20080611
  6. PLAVIX [Suspect]
     Dosage: 300 MG, SINGLE
     Route: 048
     Dates: start: 20080611, end: 20080611
  7. HYDROCHLOROTHIAZIDE [Concomitant]
     Indication: DRUG USE FOR UNKNOWN INDICATION
     Dosage: 12.5 MG, DAILY
     Route: 048
     Dates: start: 20050301
  8. GABAPENTIN [Concomitant]
     Indication: NEURALGIA
     Dosage: UNK
     Route: 065
     Dates: start: 20060101

REACTIONS (9)
  - ASTHENIA [None]
  - CONFUSIONAL STATE [None]
  - DISORIENTATION [None]
  - DIZZINESS [None]
  - FATIGUE [None]
  - HEART RATE INCREASED [None]
  - HYPOTENSION [None]
  - THROMBOSIS [None]
  - VOMITING [None]
